FAERS Safety Report 6040955-5 (Version None)
Quarter: 2009Q1

REPORT INFORMATION
  Report Type: 
  Country: None (occurrence: None)
  Receive Date: 20090116
  Receipt Date: 20080710
  Transmission Date: 20090719
  Serious: No
  Sender: FDA-Public Use
  Company Number: US-BRISTOL-MYERS SQUIBB COMPANY-14256887

PATIENT
  Age: 48 Year
  Sex: Male

DRUGS (5)
  1. ABILIFY [Suspect]
     Indication: BIPOLAR DISORDER
  2. ABILIFY [Suspect]
     Indication: SEXUAL DYSFUNCTION
  3. EFFEXOR [Concomitant]
  4. KLONOPIN [Concomitant]
  5. LITHIUM [Concomitant]

REACTIONS (3)
  - ERECTION INCREASED [None]
  - SPEECH DISORDER [None]
  - THINKING ABNORMAL [None]
